FAERS Safety Report 9345520 (Version 1)
Quarter: 2013Q2

REPORT INFORMATION
  Report Type: Report from Study
  Country: CA (occurrence: CA)
  Receive Date: 20130613
  Receipt Date: 20130613
  Transmission Date: 20140414
  Serious: Yes (Hospitalization)
  Sender: FDA-Public Use
  Company Number: CA-JNJFOC-20130604255

PATIENT
  Age: 71 Year
  Sex: Female
  Weight: 40.82 kg

DRUGS (1)
  1. REMICADE [Suspect]
     Indication: CROHN^S DISEASE
     Dosage: APPROXIMATELY JUNE
     Route: 042
     Dates: start: 2010

REACTIONS (1)
  - Intestinal operation [Recovering/Resolving]
